FAERS Safety Report 24991332 (Version 1)
Quarter: 2025Q1

REPORT INFORMATION
  Report Type: Report from Study
  Country: ES (occurrence: ES)
  Receive Date: 20250220
  Receipt Date: 20250220
  Transmission Date: 20250409
  Serious: Yes (Hospitalization, Other)
  Sender: ABBVIE
  Company Number: ES-ABBVIE-5786360

PATIENT
  Age: 77 Year
  Sex: Female

DRUGS (2)
  1. CARBIDOPA\LEVODOPA [Suspect]
     Active Substance: CARBIDOPA\LEVODOPA
     Indication: Parkinson^s disease
     Route: 058
     Dates: start: 20240410
  2. PRAMIPEXOLE [Concomitant]
     Active Substance: PRAMIPEXOLE
     Indication: Parkinson^s disease
     Route: 048
     Dates: start: 20240411

REACTIONS (5)
  - Renal embolism [Unknown]
  - Pulmonary embolism [Recovered/Resolved]
  - Urinary tract infection [Unknown]
  - Coronavirus test positive [Recovered/Resolved]
  - Malaise [Unknown]

NARRATIVE: CASE EVENT DATE: 20240101
